FAERS Safety Report 5138718-8 (Version None)
Quarter: 2006Q4

REPORT INFORMATION
  Report Type: 
  Country: None (occurrence: None)
  Receive Date: 20061030
  Receipt Date: 20061019
  Transmission Date: 20070319
  Serious: Yes (Hospitalization)
  Sender: FDA-Public Use
  Company Number: AU-ROCHE-467807

PATIENT
  Age: 57 Year
  Sex: Male

DRUGS (2)
  1. CAPECITABINE [Suspect]
     Dosage: IN TWO DIVIDED DOSES ON DAYS 1 TO 14 EVERY 3 WEEKS (AS PER PROTOCOL)
     Route: 048
     Dates: start: 20060928, end: 20061011
  2. BEVACIZUMAB [Suspect]
     Dosage: FREQUENCY AS PER PROTOCOL
     Route: 042

REACTIONS (10)
  - ABDOMINAL DISTENSION [None]
  - CONVULSION [None]
  - DIARRHOEA [None]
  - FALL [None]
  - FATIGUE [None]
  - HYPERGLYCAEMIA [None]
  - LACERATION [None]
  - OEDEMA [None]
  - PROCTALGIA [None]
  - THROMBOCYTOPENIA [None]
